FAERS Safety Report 8881080 (Version 1)
Quarter: 2012Q4

REPORT INFORMATION
  Report Type: 
  Country: US (occurrence: US)
  Receive Date: 20121101
  Receipt Date: 20121101
  Transmission Date: 20130627
  Serious: Yes (Other)
  Sender: FDA-Public Use
  Company Number: US-FRI-1000039868

PATIENT
  Age: 27 Year
  Sex: Female

DRUGS (5)
  1. CELEXA [Suspect]
     Indication: DEPRESSION
     Dosage: 20 mg
     Route: 048
     Dates: start: 201209, end: 201210
  2. CELEXA [Suspect]
     Indication: DEPRESSION
     Dosage: 40 mg
     Route: 048
     Dates: start: 201210, end: 20121020
  3. CELEXA [Suspect]
     Dosage: 20 mg
     Route: 048
     Dates: start: 20121023
  4. METOPROLOL [Concomitant]
     Indication: HEART RATE IRREGULAR
  5. CLINDAMYCIN [Concomitant]

REACTIONS (2)
  - VIIth nerve paralysis [Not Recovered/Not Resolved]
  - Rash [Recovered/Resolved]
